FAERS Safety Report 7462265-1 (Version None)
Quarter: 2011Q2

REPORT INFORMATION
  Report Type: 
  Country: None (occurrence: None)
  Receive Date: 20110506
  Receipt Date: 20110323
  Transmission Date: 20111010
  Serious: Yes (Other)
  Sender: FDA-Public Use
  Company Number: US-BAYER-201031337NA

PATIENT
  Age: 22 Year
  Sex: Female
  Weight: 90.703 kg

DRUGS (5)
  1. YAZ [Suspect]
     Dosage: UNK
     Route: 048
     Dates: start: 20070101, end: 20090101
  2. YASMIN [Suspect]
     Route: 048
  3. XANAX [Concomitant]
  4. MULTI-VITAMIN [Concomitant]
  5. AMOXI-CLAVULANICO [Concomitant]
     Dosage: 875 MG, UNK

REACTIONS (2)
  - CHOLECYSTECTOMY [None]
  - CHOLECYSTITIS [None]
